FAERS Safety Report 8523645-6 (Version None)
Quarter: 2012Q3

REPORT INFORMATION
  Report Type: 
  Country: None (occurrence: None)
  Receive Date: 20120720
  Receipt Date: 20120711
  Transmission Date: 20120928
  Serious: Yes (Hospitalization)
  Sender: FDA-Public Use
  Company Number: IL-ABBOTT-12P-082-0955820-00

PATIENT
  Sex: Female

DRUGS (8)
  1. HUMIRA [Suspect]
     Indication: PSORIATIC ARTHROPATHY
     Route: 058
     Dates: start: 20120617
  2. DEPREXAN [Concomitant]
     Indication: DEPRESSION
  3. CLONEX [Concomitant]
     Indication: PRODUCT USED FOR UNKNOWN INDICATION
  4. JANOVIA [Concomitant]
     Indication: DIABETES MELLITUS
  5. MICROPIRIN [Concomitant]
     Indication: PRODUCT USED FOR UNKNOWN INDICATION
  6. UNKNOWN MEDICATION [Concomitant]
     Indication: HYPERLIPIDAEMIA
  7. HUMALOG [Concomitant]
     Indication: PRODUCT USED FOR UNKNOWN INDICATION
  8. IMURAN [Concomitant]
     Indication: PSORIATIC ARTHROPATHY

REACTIONS (3)
  - PYREXIA [None]
  - HAEMOPTYSIS [None]
  - CONFUSIONAL STATE [None]
